FAERS Safety Report 5389981-X (Version None)
Quarter: 2007Q3

REPORT INFORMATION
  Report Type: 
  Country: None (occurrence: None)
  Receive Date: 20070716
  Receipt Date: 20070716
  Transmission Date: 20080115
  Serious: Yes (Hospitalization, Other)
  Sender: FDA-Public Use
  Company Number: None

PATIENT
  Age: 44 Year
  Sex: Female
  Weight: 88.4514 kg

DRUGS (1)
  1. VERAPAMIL EXTENDED-RELEASE [Suspect]
     Indication: HYPERTENSION
     Dosage: 1 TABLET TWICE DAILY PO
     Route: 048
     Dates: start: 20070202, end: 20070601

REACTIONS (8)
  - ASTHMA [None]
  - EMOTIONAL DISTRESS [None]
  - EYELID OEDEMA [None]
  - OEDEMA PERIPHERAL [None]
  - PAIN IN EXTREMITY [None]
  - RENAL FAILURE [None]
  - SWELLING FACE [None]
  - WEIGHT DECREASED [None]
